FAERS Safety Report 6854097-X (Version None)
Quarter: 2010Q3

REPORT INFORMATION
  Report Type: 
  Country: None (occurrence: None)
  Receive Date: 20100717
  Receipt Date: 20080205
  Transmission Date: 20110219
  Serious: No
  Sender: FDA-Public Use
  Company Number: US-PFIZER INC-2007102386

PATIENT
  Sex: Male
  Weight: 198 kg

DRUGS (4)
  1. CHANTIX [Suspect]
     Indication: SMOKING CESSATION THERAPY
     Route: 048
     Dates: start: 20070831
  2. XANAX [Concomitant]
  3. ZOCOR [Concomitant]
  4. ACYCLOVIR [Concomitant]

REACTIONS (6)
  - ABNORMAL DREAMS [None]
  - AGITATION [None]
  - INSOMNIA [None]
  - NERVOUSNESS [None]
  - SEDATION [None]
  - STRESS [None]
